FAERS Safety Report 16083472 (Version 3)
Quarter: 2019Q2

REPORT INFORMATION
  Report Type: Spontaneous
  Country: BR (occurrence: BR)
  Receive Date: 20190318
  Receipt Date: 20190410
  Transmission Date: 20190711
  Serious: Yes (Other)
  Sender: FDA-Public Use
  Company Number: BR-ROCHE-2283322

PATIENT
  Sex: Male

DRUGS (5)
  1. DIAZEPAM. [Suspect]
     Active Substance: DIAZEPAM
     Indication: PRODUCT USED FOR UNKNOWN INDICATION
     Route: 065
  2. LEVODOPA [Concomitant]
     Active Substance: LEVODOPA
  3. CARBAMAZEPINE. [Concomitant]
     Active Substance: CARBAMAZEPINE
  4. RIVOTRIL [Suspect]
     Active Substance: CLONAZEPAM
     Indication: MENTAL DISORDER
     Route: 048
  5. RIVOTRIL [Suspect]
     Active Substance: CLONAZEPAM
     Indication: MENTAL DISORDER
     Route: 048

REACTIONS (14)
  - Product colour issue [Unknown]
  - Tremor [Unknown]
  - Weight decreased [Unknown]
  - Mental disorder [Not Recovered/Not Resolved]
  - Skin laceration [Unknown]
  - Drug abuse [Unknown]
  - Seizure [Unknown]
  - Cardiac disorder [Unknown]
  - Vision blurred [Unknown]
  - Product quality issue [Unknown]
  - Tongue disorder [Unknown]
  - Hyperhidrosis [Unknown]
  - Malaise [Unknown]
  - Drug dependence [Not Recovered/Not Resolved]
